FAERS Safety Report 7333737-5 (Version None)
Quarter: 2011Q1

REPORT INFORMATION
  Report Type: 
  Country: None (occurrence: None)
  Receive Date: 20110306
  Receipt Date: 20110208
  Transmission Date: 20110831
  Serious: No
  Sender: FDA-Public Use
  Company Number: US-BAYER-2011-014870

PATIENT
  Sex: Female
  Weight: 96 kg

DRUGS (5)
  1. LIPITOR [Concomitant]
  2. XANAX [Concomitant]
  3. PLAVIX [Concomitant]
  4. ALEVE (CAPLET) [Suspect]
     Indication: ARTHRITIS
     Dosage: DAILY, ONCE
     Route: 048
     Dates: start: 20110207, end: 20110207
  5. NORVASC [Concomitant]

REACTIONS (1)
  - INITIAL INSOMNIA [None]
